FAERS Safety Report 6434671-5 (Version None)
Quarter: 2009Q4

REPORT INFORMATION
  Report Type: 
  Country: None (occurrence: None)
  Receive Date: 20091110
  Receipt Date: 20091017
  Transmission Date: 20100525
  Serious: Yes (Hospitalization, Other)
  Sender: FDA-Public Use
  Company Number: US-ROCHE-657890

PATIENT
  Sex: Male
  Weight: 76.4 kg

DRUGS (11)
  1. CAPECITABINE [Suspect]
     Dosage: FREQ: DAY 1-7/14
     Route: 048
     Dates: start: 20090910, end: 20090915
  2. GEMCITABINE [Suspect]
     Dosage: CYCLE 3, FREQ: DAY 1 EACH CYCLE.
     Route: 042
     Dates: start: 20090910, end: 20090910
  3. AMLODIPINE [Concomitant]
     Dosage: DRUG REPORTED AS: AMOLODIPINE
  4. HYDROCHLOROTHIAZIDE [Concomitant]
  5. LEVOTHYROXINE SODIUM [Concomitant]
  6. COMPAZINE [Concomitant]
  7. ONDANSETRON [Concomitant]
  8. ATIVAN [Concomitant]
  9. PYRIDOXINE [Concomitant]
  10. HCL [Concomitant]
  11. SALT [Concomitant]
     Dosage: DRUG REPORTED AS: SALT TABLETS.

REACTIONS (16)
  - AGITATION [None]
  - CONFUSIONAL STATE [None]
  - DIARRHOEA [None]
  - DISORIENTATION [None]
  - FEBRILE NEUTROPENIA [None]
  - HICCUPS [None]
  - HYPERBILIRUBINAEMIA [None]
  - HYPOALBUMINAEMIA [None]
  - HYPOKALAEMIA [None]
  - HYPONATRAEMIA [None]
  - INCONTINENCE [None]
  - NEUTROPENIA [None]
  - OEDEMA PERIPHERAL [None]
  - PALMAR-PLANTAR ERYTHRODYSAESTHESIA SYNDROME [None]
  - SKIN EXFOLIATION [None]
  - WHITE BLOOD CELL COUNT [None]
